FAERS Safety Report 7762990-9 (Version None)
Quarter: 2011Q3

REPORT INFORMATION
  Report Type: 
  Country: None (occurrence: None)
  Receive Date: 20110825
  Receipt Date: 20110624
  Transmission Date: 20111222
  Serious: No
  Sender: FDA-Public Use
  Company Number: 330941

PATIENT
  Age: 68 Year
  Sex: Female

DRUGS (2)
  1. NOVOLOG MIX 70/30 [Suspect]
     Indication: TYPE 2 DIABETES MELLITUS
  2. VICTOZA [Suspect]
     Indication: TYPE 2 DIABETES MELLITUS
     Dosage: 1.8 MG, QD, SUBCUTANEOUS
     Route: 058

REACTIONS (5)
  - WEIGHT INCREASED [None]
  - SOMNOLENCE [None]
  - NAUSEA [None]
  - DISORIENTATION [None]
  - DIZZINESS [None]
